FAERS Safety Report 11831317 (Version 1)
Quarter: 2015Q4

REPORT INFORMATION
  Report Type: Spontaneous
  Country: US (occurrence: None)
  Receive Date: 20151211
  Receipt Date: 20151211
  Transmission Date: 20160305
  Serious: No
  Sender: FDA-Public Use
  Company Number: None

PATIENT
  Age: 65 Year
  Sex: Male
  Weight: 60.78 kg

DRUGS (1)
  1. ADVIL [Suspect]
     Active Substance: IBUPROFEN
     Indication: PYREXIA
     Dosage: 2 PILLS/4 HOURS OR AS NEEDED
     Dates: start: 20151202, end: 20151203

REACTIONS (3)
  - Product lot number issue [None]
  - Pruritus generalised [None]
  - Product contamination [None]

NARRATIVE: CASE EVENT DATE: 20151202
